FAERS Safety Report 23807676 (Version 1)
Quarter: 2024Q2

REPORT INFORMATION
  Report Type: Spontaneous
  Country: US (occurrence: US)
  Receive Date: 20240502
  Receipt Date: 20240502
  Transmission Date: 20240715
  Serious: No
  Sender: FDA-Public Use
  Company Number: US-PADAGIS-2024PAD00660

PATIENT

DRUGS (1)
  1. METRONIDAZOLE [Suspect]
     Active Substance: METRONIDAZOLE
     Indication: Bacterial vaginosis
     Dosage: UNK, EVERY DAY OR EVERY OTHER DAY
     Route: 067

REACTIONS (4)
  - Fungal infection [Unknown]
  - Disease progression [Unknown]
  - Drug ineffective [Unknown]
  - Product use issue [Unknown]
